FAERS Safety Report 7226970-4 (Version None)
Quarter: 2011Q1

REPORT INFORMATION
  Report Type: 
  Country: None (occurrence: None)
  Receive Date: 20110114
  Receipt Date: 20110110
  Transmission Date: 20110831
  Serious: Yes (Other)
  Sender: FDA-Public Use
  Company Number: US-PFIZER INC-HQWYE696211OCT04

PATIENT
  Sex: Female
  Weight: 91 kg

DRUGS (9)
  1. PREMPRO [Suspect]
     Indication: OSTEOPOROSIS
     Dosage: UNK
     Route: 048
  2. PROVERA [Suspect]
     Indication: HORMONE REPLACEMENT THERAPY
  3. PREMARIN [Suspect]
     Indication: OSTEOPOROSIS
     Dosage: UNK
     Route: 048
  4. PREMPRO [Suspect]
     Indication: PROPHYLAXIS
  5. PREMPRO [Suspect]
     Indication: HORMONE REPLACEMENT THERAPY
  6. PREMARIN [Suspect]
     Indication: PROPHYLAXIS
  7. PROVERA [Suspect]
     Indication: OSTEOPOROSIS
     Dosage: UNK
     Route: 048
  8. PROVERA [Suspect]
     Indication: PROPHYLAXIS
  9. PREMARIN [Suspect]
     Indication: HORMONE REPLACEMENT THERAPY

REACTIONS (1)
  - BREAST CANCER FEMALE [None]
